FAERS Safety Report 14070093 (Version 1)
Quarter: 2017Q4

REPORT INFORMATION
  Report Type: Spontaneous
  Country: US (occurrence: None)
  Receive Date: 20171010
  Receipt Date: 20171010
  Transmission Date: 20180321
  Serious: No
  Sender: FDA-Public Use
  Company Number: None

PATIENT

DRUGS (2)
  1. HEPARIN SOD. SOLUTION 25,000 UNITS/ 500ML HEPARIN SODIUM [Suspect]
     Active Substance: HEPARIN SODIUM
     Dosage: SIZE: 500 ML
     Route: 042
  2. HESPAN [Suspect]
     Active Substance: HETASTARCH\SODIUM CHLORIDE
     Dosage: SIZE 500 ML

REACTIONS (1)
  - Product label confusion [None]
